FAERS Safety Report 4613630-9 (Version None)
Quarter: 2005Q1

REPORT INFORMATION
  Report Type: 
  Country: None (occurrence: None)
  Receive Date: 20050315
  Receipt Date: 20030318
  Transmission Date: 20050727
  Serious: No
  Sender: FDA-Public Use
  Company Number: 5001

PATIENT
  Sex: Male

DRUGS (2)
  1. MIDAZOLAM [Suspect]
     Indication: SENSORY DISTURBANCE
     Dosage: 10 MG ONCE
     Dates: start: 20010713, end: 20010713
  2. PETHIDINE HYDROCHLORIDE [Suspect]
     Indication: SENSORY DISTURBANCE
     Dosage: 75 MG ONCE
     Dates: start: 20010713, end: 20010713

REACTIONS (2)
  - ERYTHEMA [None]
  - RASH [None]
